FAERS Safety Report 13863090 (Version 2)
Quarter: 2017Q3

REPORT INFORMATION
  Report Type: Spontaneous
  Country: DE (occurrence: DE)
  Receive Date: 20170814
  Receipt Date: 20170816
  Transmission Date: 20171127
  Serious: Yes (Other)
  Sender: FDA-Public Use
  Company Number: DE-B.I. PHARMACEUTICALS,INC./RIDGEFIELD-2017-BI-044526

PATIENT
  Age: 36 Year
  Sex: Female
  Weight: 86 kg

DRUGS (5)
  1. PREDNISOLON [Concomitant]
     Active Substance: PREDNISOLONE
     Indication: PRODUCT USED FOR UNKNOWN INDICATION
     Route: 065
  2. ATROVENT [Suspect]
     Active Substance: IPRATROPIUM BROMIDE
     Indication: ASTHMA
     Dosage: FORM STRENGTH: 250MCG/2ML
     Route: 055
     Dates: start: 20170808
  3. DOXEPIN [Concomitant]
     Active Substance: DOXEPIN
     Indication: PRODUCT USED FOR UNKNOWN INDICATION
     Route: 065
  4. ATROVENT [Suspect]
     Active Substance: IPRATROPIUM BROMIDE
     Indication: DYSPNOEA
  5. FOSTER [Concomitant]
     Active Substance: BECLOMETHASONE\FORMOTEROL
     Indication: PRODUCT USED FOR UNKNOWN INDICATION
     Route: 065

REACTIONS (18)
  - Hypoaesthesia [Unknown]
  - Muscle tightness [Unknown]
  - Loss of consciousness [Unknown]
  - Nausea [Unknown]
  - Erythema [Unknown]
  - Anticholinergic syndrome [Unknown]
  - Gait disturbance [Unknown]
  - Sedation [Unknown]
  - Blood pressure increased [Unknown]
  - Feeling hot [Unknown]
  - Vision blurred [Unknown]
  - Feeling abnormal [Unknown]
  - Fatigue [Unknown]
  - Dyskinesia [Unknown]
  - Coordination abnormal [Unknown]
  - Dry mouth [Unknown]
  - Dizziness [Unknown]
  - Headache [Unknown]

NARRATIVE: CASE EVENT DATE: 20170808
